FAERS Safety Report 9740120 (Version 1)
Quarter: 2013Q4

REPORT INFORMATION
  Report Type: Spontaneous
  Country: US (occurrence: US)
  Receive Date: 20131209
  Receipt Date: 20131209
  Transmission Date: 20140711
  Serious: Yes (Other)
  Sender: FDA-Public Use
  Company Number: US-B.I. PHARMACEUTICALS,INC./RIDGEFIELD-2013-BI-40956GD

PATIENT
  Age: 59 Year
  Sex: Female

DRUGS (1)
  1. CLONIDINE TTS [Suspect]
     Indication: HYPERTENSION
     Route: 062

REACTIONS (1)
  - Dysphagia [Recovered/Resolved]
